FAERS Safety Report 6690666-8 (Version None)
Quarter: 2010Q2

REPORT INFORMATION
  Report Type: 
  Country: None (occurrence: None)
  Receive Date: 20100421
  Receipt Date: 20090422
  Transmission Date: 20101027
  Serious: No
  Sender: FDA-Public Use
  Company Number: US-BRISTOL-MYERS SQUIBB COMPANY-14592976

PATIENT
  Age: 85 Year
  Sex: Female
  Weight: 45 kg

DRUGS (11)
  1. HYDREA [Suspect]
     Indication: PLATELET COUNT INCREASED
     Dosage: 2 TABLETS DAILY
     Dates: start: 20080501, end: 20090415
  2. TENORMIN [Concomitant]
  3. MAXIDEX [Concomitant]
  4. DILANTIN [Concomitant]
  5. PREVACID [Concomitant]
  6. FOSAMAX [Concomitant]
  7. NEURONTIN [Concomitant]
  8. PROCARDIA [Concomitant]
  9. ZOCOR [Concomitant]
  10. OXYCONTIN [Concomitant]
  11. VALIUM [Concomitant]

REACTIONS (3)
  - OEDEMA PERIPHERAL [None]
  - PAIN IN EXTREMITY [None]
  - ROTATOR CUFF SYNDROME [None]
